FAERS Safety Report 7536825-3 (Version None)
Quarter: 2011Q2

REPORT INFORMATION
  Report Type: 
  Country: None (occurrence: None)
  Receive Date: 20110609
  Receipt Date: 20110531
  Transmission Date: 20111010
  Serious: Yes (Disabling, Other)
  Sender: FDA-Public Use
  Company Number: US-ASTRAZENECA-2011SE33514

PATIENT
  Age: 66 Year
  Sex: Female
  Weight: 64.4 kg

DRUGS (12)
  1. TRAZODONE HCL [Concomitant]
     Indication: SLEEP DISORDER
  2. SPIRIVA [Concomitant]
  3. CHANTIX [Suspect]
     Indication: SMOKING CESSATION THERAPY
     Route: 048
     Dates: start: 20080101
  4. CHANTIX [Suspect]
     Route: 048
     Dates: start: 20090101
  5. CHANTIX [Suspect]
     Route: 048
     Dates: start: 20110512
  6. RANITIDINE [Concomitant]
  7. CLONAZEPAM [Concomitant]
  8. LEVOTHYROXINE SODIUM [Concomitant]
     Indication: THYROID DISORDER
  9. ADVAIR DISKUS 100/50 [Concomitant]
  10. PROTONIX [Concomitant]
  11. CLONAZEPAM [Concomitant]
  12. SEROQUEL [Suspect]
     Route: 048

REACTIONS (14)
  - CONFUSIONAL STATE [None]
  - ERYTHEMA [None]
  - WEIGHT DECREASED [None]
  - RESTLESS LEGS SYNDROME [None]
  - BEDRIDDEN [None]
  - DRUG WITHDRAWAL SYNDROME [None]
  - ACCIDENT [None]
  - MOBILITY DECREASED [None]
  - FALL [None]
  - NIGHTMARE [None]
  - DEPRESSION [None]
  - HYPERTENSION [None]
  - INCREASED UPPER AIRWAY SECRETION [None]
  - GLUCOSE TOLERANCE IMPAIRED [None]
